FAERS Safety Report 14466968 (Version 1)
Quarter: 2018Q1

REPORT INFORMATION
  Report Type: Other
  Country: US (occurrence: US)
  Receive Date: 20180131
  Receipt Date: 20180131
  Transmission Date: 20180509
  Serious: No
  Sender: FDA-Public Use
  Company Number: US-ACORDA-ACO_137281_2017

PATIENT
  Age: 57 Year
  Sex: Female
  Weight: 77.1 kg

DRUGS (1)
  1. AMPYRA [Suspect]
     Active Substance: DALFAMPRIDINE
     Indication: PRODUCT USED FOR UNKNOWN INDICATION
     Dosage: 10 MG, Q 12 HRS
     Route: 048
     Dates: start: 20170401, end: 20170425

REACTIONS (2)
  - Fatigue [Unknown]
  - Drug ineffective [Recovered/Resolved]

NARRATIVE: CASE EVENT DATE: 20170405
